FAERS Safety Report 8495514-1 (Version None)
Quarter: 2012Q3

REPORT INFORMATION
  Report Type: 
  Country: None (occurrence: None)
  Receive Date: 20120709
  Receipt Date: 20120704
  Transmission Date: 20120928
  Serious: Yes (Other)
  Sender: FDA-Public Use
  Company Number: JP-PFIZER INC-2012159917

PATIENT
  Age: 55 Year
  Sex: Male

DRUGS (4)
  1. ATENOLOL [Suspect]
     Dosage: 47 TABS
     Route: 048
  2. DOXAZOSIN MESYLATE [Suspect]
     Dosage: 39 TABS
     Route: 048
  3. OLMESARTAN MEDOXOMIL [Suspect]
     Dosage: 47 TABS
     Route: 048
  4. NIFEDIPINE [Suspect]
     Dosage: 42 TABS
     Route: 048

REACTIONS (3)
  - INTENTIONAL OVERDOSE [None]
  - SHOCK [None]
  - CIRCULATORY COLLAPSE [None]
